FAERS Safety Report 5383111-6 (Version None)
Quarter: 2007Q2

REPORT INFORMATION
  Report Type: 
  Country: None (occurrence: None)
  Receive Date: 20070629
  Receipt Date: 20070103
  Transmission Date: 20071010
  Serious: Yes (Other)
  Sender: FDA-Public Use
  Company Number: US200610004866

PATIENT
  Age: 65 Year
  Sex: Female

DRUGS (4)
  1. HUMALOG MIX 75/25 [Suspect]
     Dates: start: 20030101, end: 20030101
  2. HUMALOG PEN [Suspect]
     Dosage: SLIDING SCALE
     Dates: start: 20060101
  3. HUMALOG PEN (HUMALOG PEN) [Concomitant]
  4. LANTUS [Concomitant]

REACTIONS (6)
  - BLINDNESS [None]
  - CATARACT [None]
  - GLYCOSYLATED HAEMOGLOBIN INCREASED [None]
  - RETINAL HAEMORRHAGE [None]
  - VISUAL ACUITY REDUCED [None]
  - VITRECTOMY [None]
